FAERS Safety Report 14313510 (Version 1)
Quarter: 2017Q4

REPORT INFORMATION
  Report Type: Spontaneous
  Country: US (occurrence: US)
  Receive Date: 20171220
  Receipt Date: 20171220
  Transmission Date: 20180321
  Serious: Yes (Hospitalization)
  Sender: FDA-Public Use
  Company Number: None

PATIENT
  Age: 70 Year
  Sex: Male

DRUGS (1)
  1. EFAVIRENZ. [Suspect]
     Active Substance: EFAVIRENZ
     Indication: HIV INFECTION
     Route: 048
     Dates: start: 20020624, end: 20171113

REACTIONS (5)
  - Diarrhoea [None]
  - Device related infection [None]
  - Dizziness [None]
  - Hypotension [None]
  - Arthritis infective [None]

NARRATIVE: CASE EVENT DATE: 20171110
